FAERS Safety Report 8902596 (Version 4)
Quarter: 2012Q4

REPORT INFORMATION
  Report Type: 
  Country: US (occurrence: US)
  Receive Date: 20121112
  Receipt Date: 20121219
  Transmission Date: 20130627
  Serious: Yes (Other)
  Sender: FDA-Public Use
  Company Number: US-PFIZER INC-2012281560

PATIENT
  Age: 47 Year
  Sex: Female
  Weight: 49.89 kg

DRUGS (3)
  1. ZOLOFT [Suspect]
     Dosage: UNK
  2. ZOLOFT [Suspect]
     Dosage: 100 mg, UNK
  3. VISTARIL [Suspect]
     Dosage: UNK

REACTIONS (3)
  - Dyspnoea [Unknown]
  - Swollen tongue [Unknown]
  - Tongue disorder [Unknown]
